FAERS Safety Report 25175560 (Version 2)
Quarter: 2025Q2

REPORT INFORMATION
  Report Type: Report from Study
  Country: US (occurrence: US)
  Receive Date: 20250408
  Receipt Date: 20250507
  Transmission Date: 20250716
  Serious: No
  Sender: JAZZ
  Company Number: US-JAZZ PHARMACEUTICALS-2025-US-008933

PATIENT
  Sex: Female

DRUGS (8)
  1. EPIDIOLEX [Suspect]
     Active Substance: CANNABIDIOL
     Indication: Partial seizures
     Route: 048
     Dates: start: 202503
  2. EPIDIOLEX [Suspect]
     Active Substance: CANNABIDIOL
     Indication: Epilepsy
  3. SABRIL [Concomitant]
     Active Substance: VIGABATRIN
  4. TRILEPTAL [Concomitant]
     Active Substance: OXCARBAZEPINE
  5. HYDROXYZINE [Concomitant]
     Active Substance: HYDROXYZINE HYDROCHLORIDE
  6. ATIVAN [Concomitant]
     Active Substance: LORAZEPAM
  7. SEROQUEL [Concomitant]
     Active Substance: QUETIAPINE FUMARATE
  8. TRAZODONE [Concomitant]
     Active Substance: TRAZODONE HYDROCHLORIDE

REACTIONS (1)
  - Off label use [Unknown]
